FAERS Safety Report 5601552-6 (Version None)
Quarter: 2008Q1

REPORT INFORMATION
  Report Type: 
  Country: None (occurrence: None)
  Receive Date: 20080124
  Receipt Date: 20080116
  Transmission Date: 20080703
  Serious: Yes (Other)
  Sender: FDA-Public Use
  Company Number: US-ASTRAZENECA-2008UW01295

PATIENT
  Sex: Female

DRUGS (2)
  1. ARIMIDEX [Suspect]
     Indication: BREAST CANCER
     Route: 048
     Dates: start: 20050101
  2. MANY MEDICATIONS [Concomitant]

REACTIONS (12)
  - ANXIETY [None]
  - ARTHRALGIA [None]
  - ARTHRITIS [None]
  - BLOOD PRESSURE FLUCTUATION [None]
  - BONE PAIN [None]
  - CONSTIPATION [None]
  - DEPRESSION [None]
  - DIZZINESS [None]
  - HYPERTENSION [None]
  - OSTEOPOROSIS [None]
  - TUMOUR MARKER INCREASED [None]
  - URINARY TRACT INFECTION [None]
